FAERS Safety Report 10365188 (Version 1)
Quarter: 2014Q3

REPORT INFORMATION
  Report Type: Spontaneous
  Country: GB (occurrence: GB)
  Receive Date: 20140806
  Receipt Date: 20140806
  Transmission Date: 20150326
  Serious: Yes (Disabling)
  Sender: FDA-Public Use
  Company Number: PHHY2014GB094091

PATIENT
  Age: 55 Year
  Sex: Male
  Weight: 93 kg

DRUGS (7)
  1. ATORVASTATIN [Suspect]
     Active Substance: ATORVASTATIN
     Dosage: 40 MG, UNK
     Dates: start: 20140605
  2. RAMIPRIL. [Concomitant]
     Active Substance: RAMIPRIL
     Dates: start: 20140326, end: 20140716
  3. TAMSULOSIN HYDROCHLORIDE. [Concomitant]
     Active Substance: TAMSULOSIN HYDROCHLORIDE
     Dates: start: 20140326, end: 20140525
  4. FINASTERIDE. [Concomitant]
     Active Substance: FINASTERIDE
     Dates: start: 20140326, end: 20140716
  5. LANSOPRAZOLE. [Concomitant]
     Active Substance: LANSOPRAZOLE
     Dates: start: 20140326, end: 20140716
  6. SIMVASTATIN. [Concomitant]
     Active Substance: SIMVASTATIN
     Dates: start: 20140716
  7. TADALAFIL [Concomitant]
     Active Substance: TADALAFIL
     Dates: start: 20140605, end: 20140619

REACTIONS (7)
  - Irritability [Recovered/Resolved]
  - Dizziness [Recovered/Resolved]
  - Malaise [Recovered/Resolved]
  - Depression [Recovered/Resolved]
  - Insomnia [Recovered/Resolved]
  - Tension headache [Recovered/Resolved]
  - Restlessness [Recovered/Resolved]
